FAERS Safety Report 22389847 (Version 1)
Quarter: 2023Q2

REPORT INFORMATION
  Report Type: Spontaneous
  Country: IN (occurrence: IN)
  Receive Date: 20230531
  Receipt Date: 20230531
  Transmission Date: 20230722
  Serious: Yes (Hospitalization, Other)
  Sender: FDA-Public Use
  Company Number: IN-APIL-2315943US

PATIENT
  Sex: Female

DRUGS (3)
  1. PROGESTERONE [Suspect]
     Active Substance: PROGESTERONE
     Indication: Supplementation therapy
     Dosage: HIGH DOSE
  2. IRON [Concomitant]
     Active Substance: IRON
  3. CALCIUM [Concomitant]
     Active Substance: CALCIUM

REACTIONS (8)
  - Peripartum cardiomyopathy [Recovering/Resolving]
  - Drug-induced liver injury [Unknown]
  - Pulmonary oedema [Recovering/Resolving]
  - Abortion threatened [Unknown]
  - Anaemia of pregnancy [Unknown]
  - Vaginal haemorrhage [Unknown]
  - Premature labour [Unknown]
  - Pregnancy [Unknown]
